FAERS Safety Report 14566643 (Version 1)
Quarter: 2018Q1

REPORT INFORMATION
  Report Type: Spontaneous
  Country: US (occurrence: US)
  Receive Date: 20180223
  Receipt Date: 20180223
  Transmission Date: 20180509
  Serious: Yes (Hospitalization, Other)
  Sender: FDA-Public Use
  Company Number: US-AMGEN-USASP2018024285

PATIENT
  Age: 84 Year
  Sex: Female

DRUGS (4)
  1. NEULASTA [Suspect]
     Active Substance: PEGFILGRASTIM
     Indication: MYELODYSPLASTIC SYNDROME
     Dosage: UNK, EVERY FEW MONTHS
     Route: 065
  2. NEULASTA [Suspect]
     Active Substance: PEGFILGRASTIM
     Dosage: UNK UNK, Q2WK
     Route: 065
  3. ARANESP [Suspect]
     Active Substance: DARBEPOETIN ALFA
     Indication: PRODUCT USED FOR UNKNOWN INDICATION
     Dosage: UNK, EVERY 3-4 MONTHS
     Route: 065
     Dates: start: 2015
  4. ARANESP [Suspect]
     Active Substance: DARBEPOETIN ALFA
     Dosage: UNK UNK, Q2WK
     Route: 065

REACTIONS (4)
  - White blood cell count abnormal [Unknown]
  - Pneumonia [Unknown]
  - Neutrophil count abnormal [Unknown]
  - Off label use [Unknown]

NARRATIVE: CASE EVENT DATE: 2017
